FAERS Safety Report 9251055 (Version 2)
Quarter: 2013Q2

REPORT INFORMATION
  Report Type: Spontaneous
  Country: US (occurrence: US)
  Receive Date: 20130424
  Receipt Date: 20130625
  Transmission Date: 20140414
  Serious: Yes (Other)
  Sender: FDA-Public Use
  Company Number: PHEH2013US008878

PATIENT
  Sex: Female

DRUGS (3)
  1. VIVELLE DOT [Suspect]
     Indication: INFERTILITY
     Dosage: UNK UKN, UNK
     Route: 062
  2. VIVELLE DOT [Suspect]
     Dosage: 4 DF, QOD
     Route: 062
  3. ENDOMETRIN [Concomitant]
     Indication: INFERTILITY
     Dosage: UNK UKN, TID
     Route: 067

REACTIONS (4)
  - Septic shock [Unknown]
  - Application site rash [Recovered/Resolved]
  - Application site erosion [Unknown]
  - Application site irritation [Unknown]
